FAERS Safety Report 24971580 (Version 1)
Quarter: 2025Q1

REPORT INFORMATION
  Report Type: Spontaneous
  Country: US (occurrence: None)
  Receive Date: 20250214
  Receipt Date: 20250214
  Transmission Date: 20250409
  Serious: Yes (Disabling)
  Sender: FDA-CTU
  Company Number: None

PATIENT
  Age: 74 Year
  Sex: Male
  Weight: 69.75 kg

DRUGS (1)
  1. ACYCLOVIR [Suspect]
     Active Substance: ACYCLOVIR
     Indication: Eye disorder
     Dosage: OTHER QUANTITY : 1 TABLET(S);?FREQUENCY : EVERY 12 HOURS;?
     Route: 048
     Dates: start: 20200727, end: 20230926

REACTIONS (7)
  - Acne [None]
  - Seizure [None]
  - Herpes zoster [None]
  - Suicidal ideation [None]
  - Aggression [None]
  - Sleep deficit [None]
  - Abdominal discomfort [None]

NARRATIVE: CASE EVENT DATE: 20221002
